FAERS Safety Report 13195422 (Version 1)
Quarter: 2017Q1

REPORT INFORMATION
  Report Type: Spontaneous
  Country: US (occurrence: US)
  Receive Date: 20170207
  Receipt Date: 20170207
  Transmission Date: 20170428
  Serious: No
  Sender: FDA-Public Use
  Company Number: None

PATIENT
  Age: 68 Year
  Sex: Female

DRUGS (7)
  1. NIFEDICAL XL [Concomitant]
     Active Substance: NIFEDIPINE
  2. FOLIC ACID. [Concomitant]
     Active Substance: FOLIC ACID
  3. GLIPIZIDE. [Concomitant]
     Active Substance: GLIPIZIDE
  4. OCALIVA [Suspect]
     Active Substance: OBETICHOLIC ACID
     Indication: CHOLANGITIS
     Route: 048
     Dates: start: 20170112
  5. FOSINOPRIL [Concomitant]
     Active Substance: FOSINOPRIL
  6. SIROLIMUS. [Concomitant]
     Active Substance: SIROLIMUS
  7. ESTRADIOL. [Concomitant]
     Active Substance: ESTRADIOL

REACTIONS (1)
  - Pruritus [None]

NARRATIVE: CASE EVENT DATE: 201701
